FAERS Safety Report 14491470 (Version 2)
Quarter: 2018Q1

REPORT INFORMATION
  Report Type: Spontaneous
  Country: JP (occurrence: JP)
  Receive Date: 20180206
  Receipt Date: 20180213
  Transmission Date: 20180509
  Serious: Yes (Other)
  Sender: FDA-Public Use
  Company Number: PHJP2018JP002593

PATIENT
  Age: 81 Year
  Sex: Female

DRUGS (1)
  1. VOTRIENT [Suspect]
     Active Substance: PAZOPANIB HYDROCHLORIDE
     Indication: METASTATIC RENAL CELL CARCINOMA
     Dosage: 3 DF, QD (DAILY)
     Route: 048

REACTIONS (4)
  - Fatigue [Unknown]
  - Pruritus [Unknown]
  - Metastatic renal cell carcinoma [Unknown]
  - Malignant neoplasm progression [Unknown]
